APPROVED DRUG PRODUCT: CLOBEX
Active Ingredient: CLOBETASOL PROPIONATE
Strength: 0.05%
Dosage Form/Route: SHAMPOO;TOPICAL
Application: N021644 | Product #001 | TE Code: AB
Applicant: GALDERMA LABORATORIES INC
Approved: Feb 5, 2004 | RLD: Yes | RS: Yes | Type: RX